FAERS Safety Report 9213839 (Version 1)
Quarter: 2013Q2

REPORT INFORMATION
  Report Type: Spontaneous
  Country: FR (occurrence: FR)
  Receive Date: 20130405
  Receipt Date: 20130405
  Transmission Date: 20140414
  Serious: Yes (Death, Hospitalization)
  Sender: FDA-Public Use
  Company Number: FR-BRISTOL-MYERS SQUIBB COMPANY-18718148

PATIENT
  Age: 73 Year
  Sex: Male

DRUGS (3)
  1. COUMADINE [Suspect]
     Dosage: 6MAR13-7MAR13:2.5MG/D
     Route: 048
     Dates: start: 20130304, end: 20130305
  2. LOVENOX [Suspect]
     Dosage: 1DF:6000 IU/0.6 ML
     Route: 058
     Dates: start: 20130302, end: 20130308
  3. BI-PROFENID [Concomitant]
     Route: 048
     Dates: start: 20130302, end: 20130304

REACTIONS (4)
  - Shock haemorrhagic [Fatal]
  - Peritoneal haemorrhage [Fatal]
  - Muscle haemorrhage [Fatal]
  - Condition aggravated [Fatal]
